FAERS Safety Report 5104285-8 (Version None)
Quarter: 2006Q3

REPORT INFORMATION
  Report Type: 
  Country: None (occurrence: None)
  Receive Date: 20060914
  Receipt Date: 20060906
  Transmission Date: 20061208
  Serious: Yes (Hospitalization)
  Sender: FDA-Public Use
  Company Number: PHNU2006DE03047

PATIENT
  Sex: Male

DRUGS (1)
  1. DIOVAN [Suspect]
     Dates: start: 20060101

REACTIONS (2)
  - BLOOD OSMOLARITY DECREASED [None]
  - INAPPROPRIATE ANTIDIURETIC HORMONE SECRETION [None]
